FAERS Safety Report 23238809 (Version 1)
Quarter: 2023Q4

REPORT INFORMATION
  Report Type: Spontaneous
  Country: US (occurrence: US)
  Receive Date: 20231129
  Receipt Date: 20231129
  Transmission Date: 20240110
  Serious: No
  Sender: FDA-Public Use
  Company Number: US-GLENMARK PHARMACEUTICALS-2023GMK081563

PATIENT

DRUGS (1)
  1. APREPITANT [Suspect]
     Active Substance: APREPITANT
     Indication: Preoperative care
     Dosage: 40 MILLIGRAM, QD
     Route: 048

REACTIONS (2)
  - Product dose omission issue [Unknown]
  - Product physical issue [Unknown]
